FAERS Safety Report 9682954 (Version 1)
Quarter: 2013Q4

REPORT INFORMATION
  Report Type: Spontaneous
  Country: US (occurrence: US)
  Receive Date: 20131112
  Receipt Date: 20131112
  Transmission Date: 20140711
  Serious: No
  Sender: FDA-Public Use
  Company Number: US-009507513-1311USA003533

PATIENT
  Age: 49 Year
  Sex: Male

DRUGS (3)
  1. ZETIA [Suspect]
     Indication: DYSLIPIDAEMIA
     Dosage: 10 MG, QD
     Route: 048
     Dates: start: 20131003, end: 20131031
  2. METFORMIN [Concomitant]
  3. LIPITOR [Concomitant]

REACTIONS (1)
  - Blood creatine phosphokinase increased [Unknown]
